FAERS Safety Report 24163377 (Version 1)
Quarter: 2024Q3

REPORT INFORMATION
  Report Type: Report from Study
  Country: US (occurrence: US)
  Receive Date: 20240801
  Receipt Date: 20240801
  Transmission Date: 20241017
  Serious: Yes (Other)
  Sender: G1 THERAPEUTICS
  Company Number: US-G1 THERAPEUTICS-2024G1US0000097

PATIENT

DRUGS (1)
  1. COSELA [Suspect]
     Active Substance: TRILACICLIB DIHYDROCHLORIDE
     Indication: Lung neoplasm malignant
     Dosage: 1.0 MG, SINGLE
     Route: 065
     Dates: start: 20240723, end: 20240723

REACTIONS (1)
  - Adverse reaction [Unknown]

NARRATIVE: CASE EVENT DATE: 20240723
